FAERS Safety Report 8988049 (Version 1)
Quarter: 2012Q4

REPORT INFORMATION
  Report Type: 
  Country: LT (occurrence: LT)
  Receive Date: 20121227
  Receipt Date: 20121227
  Transmission Date: 20130627
  Serious: Yes (Life-Threatening, Hospitalization)
  Sender: FDA-Public Use
  Company Number: LT-ASTRAZENECA-2012SE95755

PATIENT
  Age: 87 Year
  Sex: Female
  Weight: 48 kg

DRUGS (2)
  1. BETALOC ZOK [Suspect]
     Indication: INTENTIONAL OVERDOSE
     Dosage: 15 TABLETS
     Route: 048
     Dates: end: 20121017
  2. ORFARIN [Suspect]
     Indication: INTENTIONAL OVERDOSE
     Dosage: 25 TABLETS
     Route: 048
     Dates: end: 20121017

REACTIONS (3)
  - Suicide attempt [Recovered/Resolved]
  - Coagulopathy [Recovered/Resolved]
  - Intentional overdose [None]
